FAERS Safety Report 8249135-6 (Version None)
Quarter: 2012Q2

REPORT INFORMATION
  Report Type: 
  Country: None (occurrence: None)
  Receive Date: 20120402
  Receipt Date: 20120328
  Transmission Date: 20120825
  Serious: No
  Sender: FDA-Public Use
  Company Number: US-PFIZER INC-2012079911

PATIENT
  Sex: Female

DRUGS (2)
  1. AROMASIN [Suspect]
     Indication: BREAST CANCER
     Dosage: 25 MG, UNK
     Dates: start: 20110401, end: 20111201
  2. AROMASIN [Suspect]
     Dosage: 25 MG, UNK
     Dates: start: 20120101

REACTIONS (1)
  - JOINT STIFFNESS [None]
